FAERS Safety Report 26068816 (Version 1)
Quarter: 2025Q4

REPORT INFORMATION
  Report Type: Report from Study
  Country: CO (occurrence: CO)
  Receive Date: 20251120
  Receipt Date: 20251120
  Transmission Date: 20260117
  Serious: Yes (Other)
  Sender: RECORDATI
  Company Number: CO-RECORDATI RARE DISEASES-2025008161

PATIENT
  Age: 52 Year
  Sex: Male
  Weight: 74 kg

DRUGS (3)
  1. PANHEMATIN [Suspect]
     Active Substance: HEMIN
     Indication: Porphyria acute
     Dosage: 1 DOSAGE FORM (1 VIAL), QW
     Route: 042
     Dates: start: 20251104, end: 20251104
  2. PANHEMATIN [Suspect]
     Active Substance: HEMIN
     Indication: Prophylaxis
  3. PANHEMATIN [Suspect]
     Active Substance: HEMIN
     Indication: Off label use

REACTIONS (1)
  - Blood glucose increased [Recovered/Resolved]

NARRATIVE: CASE EVENT DATE: 20251106
